FAERS Safety Report 16148072 (Version 1)
Quarter: 2019Q2

REPORT INFORMATION
  Report Type: Spontaneous
  Country: IE (occurrence: IE)
  Receive Date: 20190402
  Receipt Date: 20190402
  Transmission Date: 20190711
  Serious: Yes (Life-Threatening, Other)
  Sender: FDA-Public Use
  Company Number: IE-PFIZER INC-2019135455

PATIENT
  Age: 33 Year
  Sex: Male
  Weight: 87 kg

DRUGS (8)
  1. PARACETAMOL [Suspect]
     Active Substance: ACETAMINOPHEN
     Indication: PREMEDICATION
     Dosage: 1 G, UNK
     Route: 048
     Dates: start: 20190225, end: 20190225
  2. PIRITON [Suspect]
     Active Substance: CHLORPHENIRAMINE MALEATE
     Indication: PREMEDICATION
     Dosage: 10 MG, UNK
     Route: 042
     Dates: start: 20190225, end: 20190225
  3. SODIUM CHLORIDE. [Suspect]
     Active Substance: SODIUM CHLORIDE
     Indication: MEDICATION DILUTION
     Dosage: ONCE EVERY 8 WEEKS
     Route: 042
     Dates: start: 20190225, end: 20190225
  4. REMICADE [Suspect]
     Active Substance: INFLIXIMAB
     Dosage: 430 MG, ^EVERY 8 WEEKS ^
     Route: 042
     Dates: start: 20190225, end: 20190225
  5. WATER FOR INJECTIONS [Suspect]
     Active Substance: WATER
     Indication: MEDICATION DILUTION
     Dosage: 1 EVERY 8 WEEKS
     Route: 042
     Dates: start: 20190225, end: 20190225
  6. HYDROCORTISONE SODIUM SUCCINATE [Suspect]
     Active Substance: HYDROCORTISONE SODIUM SUCCINATE
     Indication: PREMEDICATION
     Dosage: 100 MG, UNK
     Route: 042
     Dates: start: 20190225, end: 20190225
  7. REMICADE [Suspect]
     Active Substance: INFLIXIMAB
     Indication: COLITIS ULCERATIVE
     Dosage: 4 DOSES: THE FIRST 3 DOSES OF INFLIXIMAB WERE ADMINISTERED OVER 2 HOURS AND THE PATIENT WAS OBSERVED
     Route: 065
  8. ASACOL [Suspect]
     Active Substance: MESALAMINE
     Indication: COLITIS ULCERATIVE
     Dosage: UNK
     Route: 048
     Dates: start: 201701

REACTIONS (5)
  - Chest discomfort [Recovered/Resolved]
  - Seasonal allergy [Recovered/Resolved]
  - Hypersensitivity [Recovered/Resolved]
  - Cardiac flutter [Recovered/Resolved]
  - Flushing [Recovered/Resolved]

NARRATIVE: CASE EVENT DATE: 20190225
